FAERS Safety Report 7119989-5 (Version None)
Quarter: 2010Q4

REPORT INFORMATION
  Report Type: 
  Country: None (occurrence: None)
  Receive Date: 20101123
  Receipt Date: 20101108
  Transmission Date: 20110411
  Serious: Yes (Disabling, Other)
  Sender: FDA-Public Use
  Company Number: US-PFIZER INC-HQWYE560427JAN04

PATIENT
  Sex: Female
  Weight: 58.05 kg

DRUGS (26)
  1. EFFEXOR XR [Suspect]
     Indication: MIGRAINE
     Dosage: 75 MG, 1X/DAY
     Route: 048
     Dates: start: 20000808, end: 20010401
  2. EFFEXOR XR [Suspect]
     Indication: DEPRESSION
     Dosage: 150 MG, 1X/DAY
     Route: 048
     Dates: start: 20010401, end: 20020101
  3. EFFEXOR XR [Suspect]
     Dosage: 75 MG, 1X/DAY
     Route: 048
     Dates: start: 20020101, end: 20020101
  4. EFFEXOR XR [Suspect]
     Dosage: 37.5 MG, 1X/DAY
     Route: 048
     Dates: start: 20020101, end: 20020101
  5. EFFEXOR XR [Suspect]
     Dosage: 37.5 MG, 1X/DAY
     Route: 048
     Dates: start: 20020101, end: 20020901
  6. TRAZODONE [Concomitant]
     Indication: MIGRAINE
     Dosage: 25 MG, 1X/DAY
     Dates: start: 20000801, end: 20010101
  7. TRAZODONE [Concomitant]
     Dosage: 100 MG, FREQUENCY UNSPECIFIED
     Dates: start: 20010101
  8. VIOXX [Concomitant]
     Indication: MIGRAINE
     Dosage: 25 MG, 1X/DAY
     Dates: start: 20000801, end: 20010101
  9. ROBAXIN [Concomitant]
     Indication: MIGRAINE
     Dosage: 750 MG, 1X/DAY
     Dates: start: 20000101, end: 20010101
  10. ROBAXIN [Concomitant]
     Dosage: 750 MG, 2X/DAY
     Dates: end: 20000101
  11. MELATONIN [Concomitant]
     Indication: MIGRAINE
     Dosage: 9 MG, 1X/DAY
     Dates: start: 20000801, end: 20010101
  12. CLARITIN-D [Concomitant]
     Dosage: ONE DAILY
  13. FLONASE [Concomitant]
     Dosage: UNK
  14. MAXALT [Concomitant]
     Indication: HEADACHE
     Dosage: 10 MG, FREQUENCY UNSPECIFIED
  15. REGLAN [Concomitant]
     Dosage: UNK
  16. SANSERT [Concomitant]
     Indication: MIGRAINE
     Dosage: UNK
     Dates: start: 20000802
  17. PROMETHAZINE [Concomitant]
     Dosage: 25 MG, FREQUENCY UNSPECIFIED
  18. AUGMENTIN [Concomitant]
     Dosage: 500 MG, FREQUENCY UNSPECIFIED
  19. DIFFERIN [Concomitant]
     Dosage: 0.1 %, FREQUENCY UNSPECIFIED
  20. ZITHROMAX [Concomitant]
     Dosage: 250 MG, FREQUENCY UNSPECIFIED
  21. TANNIC ACID [Concomitant]
     Dosage: UNK
  22. PROZAC [Concomitant]
     Dosage: 10 MG, FREQUENCY UNSPECIFIED
  23. IMITREX [Concomitant]
     Dosage: 50 MG, FREQUENCY UNSPECIFIED
  24. KETOPROFEN [Concomitant]
     Dosage: 75 MG, 3X/DAY
     Dates: start: 20000801
  25. ADVIL [Concomitant]
     Dosage: UNK
  26. PHENERGAN ^MAY + BAKER^ [Concomitant]
     Indication: MIGRAINE
     Dosage: 25 MG, 1X/DAY
     Dates: start: 20000801, end: 20010101

REACTIONS (43)
  - AGGRESSION [None]
  - AGITATION [None]
  - ANGER [None]
  - BELLIGERENCE [None]
  - CONDITION AGGRAVATED [None]
  - CRYING [None]
  - DISINHIBITION [None]
  - DISTURBANCE IN ATTENTION [None]
  - DISTURBANCE IN SOCIAL BEHAVIOUR [None]
  - DIZZINESS [None]
  - DRUG INEFFECTIVE FOR UNAPPROVED INDICATION [None]
  - DRUG WITHDRAWAL SYNDROME [None]
  - EATING DISORDER [None]
  - EUPHORIC MOOD [None]
  - EXERCISE LACK OF [None]
  - FATIGUE [None]
  - FEELING ABNORMAL [None]
  - FEELING JITTERY [None]
  - HOSTILITY [None]
  - IMPULSE-CONTROL DISORDER [None]
  - IRRITABILITY [None]
  - MALAISE [None]
  - MIGRAINE [None]
  - MOOD SWINGS [None]
  - MUSCLE SPASMS [None]
  - MUSCULOSKELETAL STIFFNESS [None]
  - MYALGIA [None]
  - NAUSEA [None]
  - NERVOUS SYSTEM DISORDER [None]
  - NERVOUSNESS [None]
  - NEUROTOXICITY [None]
  - PERSONALITY CHANGE [None]
  - PHOTOPHOBIA [None]
  - PSYCHOMOTOR HYPERACTIVITY [None]
  - SCREAMING [None]
  - SELF ESTEEM DECREASED [None]
  - SLEEP DISORDER [None]
  - SOMNOLENCE [None]
  - SUICIDAL IDEATION [None]
  - SUICIDE ATTEMPT [None]
  - UNEVALUABLE EVENT [None]
  - VERTIGO [None]
  - WEIGHT INCREASED [None]
